FAERS Safety Report 17877610 (Version 2)
Quarter: 2020Q3

REPORT INFORMATION
  Report Type: Spontaneous
  Country: JP (occurrence: JP)
  Receive Date: 20200609
  Receipt Date: 20200710
  Transmission Date: 20201103
  Serious: Yes (Hospitalization)
  Sender: FDA-Public Use
  Company Number: JP-PFIZER INC-2020222440

PATIENT
  Age: 72 Year
  Sex: Male
  Weight: 47 kg

DRUGS (11)
  1. BELSOMRA [Concomitant]
     Active Substance: SUVOREXANT
     Dosage: UNK
  2. XELJANZ [Suspect]
     Active Substance: TOFACITINIB CITRATE
     Indication: RHEUMATOID ARTHRITIS
     Dosage: UNK
     Route: 048
     Dates: end: 20200211
  3. ETHYL ICOSAPENTATE [Concomitant]
     Active Substance: ICOSAPENT ETHYL
     Dosage: UNK
  4. BROTIZOLAM [Concomitant]
     Active Substance: BROTIZOLAM
     Dosage: UNK
  5. GOSHAJINKIGAN [Concomitant]
     Active Substance: HERBALS
     Dosage: UNK
  6. NESINA [Concomitant]
     Active Substance: ALOGLIPTIN BENZOATE
     Dosage: UNK
  7. GLIMICRON [Concomitant]
     Active Substance: GLICLAZIDE
     Dosage: UNK
  8. METGLUCO [Concomitant]
     Active Substance: METFORMIN HYDROCHLORIDE
     Dosage: UNK
  9. CILOSTAZOL. [Concomitant]
     Active Substance: CILOSTAZOL
     Dosage: UNK
  10. METHYCOBAL [Concomitant]
     Active Substance: METHYLCOBALAMIN
     Dosage: UNK
  11. YOKUKANSANKACHIMPIHANGE [ANGELICA ACUTILOBA ROOT;ATRACTYLODES LANCEA R [Concomitant]
     Dosage: UNK

REACTIONS (1)
  - Hypopharyngeal cancer [Not Recovered/Not Resolved]

NARRATIVE: CASE EVENT DATE: 201912
